FAERS Safety Report 5027351-4 (Version None)
Quarter: 2006Q2

REPORT INFORMATION
  Report Type: 
  Country: None (occurrence: None)
  Receive Date: 20060609
  Receipt Date: 20060530
  Transmission Date: 20061013
  Serious: Yes (Other)
  Sender: FDA-Public Use
  Company Number: HQWYE089314AUG03

PATIENT
  Age: 66 Year
  Sex: Female
  Weight: 65.83 kg

DRUGS (15)
  1. PREMPRO [Suspect]
     Indication: HORMONE REPLACEMENT THERAPY
     Dosage: DAILY, ORAL
     Route: 048
     Dates: start: 19951101, end: 20011101
  2. PREMPRO [Suspect]
     Indication: MENOPAUSAL SYMPTOMS
     Dosage: DAILY, ORAL
     Route: 048
     Dates: start: 19951101, end: 20011101
  3. PREMARIN [Suspect]
  4. ENALAPRIL MALEATE [Concomitant]
  5. HYDROCHLOROTHIAZIDE [Concomitant]
  6. DICLOFENAC (DICLOFENAC) [Concomitant]
  7. ATENOLOL [Concomitant]
  8. LIPITOR [Concomitant]
  9. FOSAMAX [Concomitant]
  10. ASTELIN [Concomitant]
  11. ATROVENT [Concomitant]
  12. FOLIC ACID [Concomitant]
  13. ASPIRIN [Concomitant]
  14. ASCORBIC ACID [Concomitant]
  15. POTASSIUM (POTASSIUM) [Concomitant]

REACTIONS (15)
  - ANGER [None]
  - AORTIC DISORDER [None]
  - BREAST CANCER FEMALE [None]
  - BREAST CANCER METASTATIC [None]
  - CARDIOMEGALY [None]
  - DEPRESSION [None]
  - FIBROCYSTIC BREAST DISEASE [None]
  - INJURY [None]
  - LUMBAR VERTEBRAL FRACTURE [None]
  - METASTASES TO LYMPH NODES [None]
  - OESTROGEN RECEPTOR ASSAY POSITIVE [None]
  - PROGESTERONE RECEPTOR ASSAY POSITIVE [None]
  - SEBORRHOEIC KERATOSIS [None]
  - SPINAL COMPRESSION FRACTURE [None]
  - SPINAL DEFORMITY [None]
